FAERS Safety Report 4321191-7 (Version None)
Quarter: 2004Q1

REPORT INFORMATION
  Report Type: 
  Country: None (occurrence: None)
  Receive Date: 20040322
  Receipt Date: 20030130
  Transmission Date: 20041129
  Serious: Yes (Other)
  Sender: FDA-Public Use
  Company Number: WAES 0302USA00104

PATIENT
  Age: 66 Year
  Sex: Female
  Weight: 68 kg

DRUGS (14)
  1. ASPIRIN [Concomitant]
     Dates: start: 19980101, end: 20000505
  2. ASPIRIN [Concomitant]
     Dates: start: 20010101, end: 20030728
  3. LOMOTIL [Concomitant]
     Indication: DIARRHOEA
  4. INSULIN [Concomitant]
     Indication: DIABETES MELLITUS
  5. SYNTHROID [Concomitant]
     Indication: THYROID DISORDER
  6. MELATONIN [Concomitant]
  7. PAMELOR [Concomitant]
     Indication: SLEEP DISORDER
     Dates: start: 19990817
  8. PRILOSEC [Concomitant]
  9. VIOXX [Suspect]
     Indication: RHEUMATOID ARTHRITIS
     Route: 048
     Dates: start: 19990817, end: 20011101
  10. AVANDIA [Concomitant]
  11. ZOCOR [Concomitant]
     Indication: BLOOD TRIGLYCERIDES INCREASED
     Route: 048
     Dates: start: 20010901, end: 20011101
  12. ZOCOR [Concomitant]
     Route: 048
     Dates: end: 20010821
  13. ZOCOR [Concomitant]
     Route: 048
     Dates: start: 20011101, end: 20030728
  14. KENALOG [Concomitant]
     Route: 030

REACTIONS (42)
  - ANGINA PECTORIS [None]
  - ARTHRALGIA [None]
  - ASTHENIA [None]
  - BLOOD CHOLESTEROL INCREASED [None]
  - BLOOD PRESSURE SYSTOLIC INCREASED [None]
  - CARDIAC STRESS TEST ABNORMAL [None]
  - CAROTID ARTERY ATHEROMA [None]
  - CAROTID ARTERY DISEASE [None]
  - DISORIENTATION [None]
  - DIZZINESS [None]
  - DRUG INEFFECTIVE [None]
  - DYSPNOEA [None]
  - DYSPNOEA EXERTIONAL [None]
  - EPISTAXIS [None]
  - FATIGUE [None]
  - GINGIVAL BLEEDING [None]
  - HEADACHE [None]
  - HEART RATE INCREASED [None]
  - HYPERTENSION [None]
  - HYPOGLYCAEMIA [None]
  - INCREASED TENDENCY TO BRUISE [None]
  - INFLUENZA [None]
  - INJURY [None]
  - LYMPHADENOPATHY [None]
  - MUSCLE FATIGUE [None]
  - MUSCLE SPASMS [None]
  - MUSCULOSKELETAL STIFFNESS [None]
  - MYALGIA [None]
  - MYOCARDIAL ISCHAEMIA [None]
  - NAUSEA [None]
  - NIGHT CRAMPS [None]
  - NOCTURIA [None]
  - OEDEMA [None]
  - OEDEMA PERIPHERAL [None]
  - PALPITATIONS [None]
  - RHEUMATOID ARTHRITIS [None]
  - SINUS DISORDER [None]
  - TACHYCARDIA [None]
  - TRANSIENT ISCHAEMIC ATTACK [None]
  - VASCULAR CALCIFICATION [None]
  - WEIGHT INCREASED [None]
  - WHEEZING [None]
